FAERS Safety Report 23078495 (Version 3)
Quarter: 2024Q1

REPORT INFORMATION
  Report Type: Spontaneous
  Country: US (occurrence: US)
  Receive Date: 20231018
  Receipt Date: 20240208
  Transmission Date: 20240410
  Serious: No
  Sender: FDA-Public Use
  Company Number: US-Biofrontera-2023BIO00053

PATIENT
  Age: 57 Year
  Sex: Male

DRUGS (1)
  1. AMELUZ [Suspect]
     Active Substance: AMINOLEVULINIC ACID HYDROCHLORIDE
     Indication: Actinic keratosis
     Route: 050
     Dates: start: 20231003, end: 20231003

REACTIONS (3)
  - Therapy interrupted [Unknown]
  - Application site warmth [Unknown]
  - Application site pain [Unknown]

NARRATIVE: CASE EVENT DATE: 20231003
